FAERS Safety Report 6537634-4 (Version None)
Quarter: 2010Q1

REPORT INFORMATION
  Report Type: 
  Country: None (occurrence: None)
  Receive Date: 20100114
  Receipt Date: 20100111
  Transmission Date: 20100710
  Serious: Yes (Hospitalization)
  Sender: FDA-Public Use
  Company Number: A0839198A

PATIENT
  Age: 47 Year
  Sex: Male

DRUGS (1)
  1. AVANDAMET [Suspect]
     Dosage: 8MG TWICE PER DAY
     Route: 048
     Dates: start: 20060101, end: 20080101

REACTIONS (1)
  - MYOCARDIAL INFARCTION [None]
